FAERS Safety Report 6762572-1 (Version None)
Quarter: 2010Q2

REPORT INFORMATION
  Report Type: 
  Country: None (occurrence: None)
  Receive Date: 20100609
  Receipt Date: 20100528
  Transmission Date: 20101027
  Serious: Yes (Other)
  Sender: FDA-Public Use
  Company Number: NL-PFIZER INC-2010067248

PATIENT
  Sex: Male

DRUGS (1)
  1. GENOTROPIN [Suspect]
     Dosage: 5 MG, UNK
     Dates: start: 20090501

REACTIONS (2)
  - BLOOD GLUCOSE DECREASED [None]
  - INCORRECT PRODUCT STORAGE [None]
